FAERS Safety Report 10913714 (Version 4)
Quarter: 2015Q2

REPORT INFORMATION
  Report Type: Spontaneous
  Country: ES (occurrence: ES)
  Receive Date: 20150313
  Receipt Date: 20150410
  Transmission Date: 20150821
  Serious: Yes (Hospitalization)
  Sender: FDA-Public Use
  Company Number: ES-AMGEN-ESPSP2015017553

PATIENT
  Age: 28 Year
  Sex: Female

DRUGS (5)
  1. ENBREL [Suspect]
     Active Substance: ETANERCEPT
     Dosage: 50 MG, QWK
     Route: 058
     Dates: start: 20150302
  2. ATORVASTATIN [Concomitant]
     Active Substance: ATORVASTATIN
     Indication: HYPERCHOLESTEROLAEMIA
     Dosage: 1 DOSAGE FORM, DAILY
  3. ENBREL [Suspect]
     Active Substance: ETANERCEPT
     Indication: PRODUCT USED FOR UNKNOWN INDICATION
     Dosage: 50 MG, ONCE WEEKLY
     Route: 058
     Dates: start: 20150211, end: 20150227
  4. OPIREL [Concomitant]
     Indication: FAMILIAL MEDITERRANEAN FEVER
     Dosage: 1 DF, DAILY
  5. COLCHIMAX                          /00728901/ [Interacting]
     Active Substance: COLCHICINE\DICYCLOMINE HYDROCHLORIDE
     Indication: FAMILIAL MEDITERRANEAN FEVER
     Dosage: FOUR TABLETS, ONCE DAILY
     Route: 065

REACTIONS (10)
  - Injection site pain [Not Recovered/Not Resolved]
  - Injection site erythema [Not Recovered/Not Resolved]
  - Off label use [Unknown]
  - Drug interaction [Recovering/Resolving]
  - Haematochezia [Recovering/Resolving]
  - Hepatitis [Recovering/Resolving]
  - Blood urine present [Recovering/Resolving]
  - Injection site pruritus [Not Recovered/Not Resolved]
  - Injection site reaction [Not Recovered/Not Resolved]
  - Injection site vesicles [Not Recovered/Not Resolved]

NARRATIVE: CASE EVENT DATE: 201502
